FAERS Safety Report 10489162 (Version 2)
Quarter: 2014Q4

REPORT INFORMATION
  Report Type: Spontaneous
  Country: CN (occurrence: CN)
  Receive Date: 20141002
  Receipt Date: 20141016
  Transmission Date: 20150528
  Serious: Yes (Death, Hospitalization, Other)
  Sender: FDA-Public Use
  Company Number: CN-ASTRAZENECA-2014SE73041

PATIENT
  Age: 27030 Day
  Sex: Male

DRUGS (73)
  1. POTASSIUM CHLORIDE. [Concomitant]
     Active Substance: POTASSIUM CHLORIDE
     Route: 048
  2. NIKETHAMIDE [Concomitant]
     Active Substance: NIKETHAMIDE
     Route: 042
     Dates: start: 20140927
  3. DOPAMINE [Concomitant]
     Active Substance: DOPAMINE\DOPAMINE HYDROCHLORIDE
     Route: 042
     Dates: start: 20140927
  4. EPINEPHRINE. [Concomitant]
     Active Substance: EPINEPHRINE
     Route: 042
     Dates: start: 20140927
  5. BRILINTA [Suspect]
     Active Substance: TICAGRELOR
     Indication: ACUTE MYOCARDIAL INFARCTION
     Route: 048
     Dates: start: 20140921, end: 20140921
  6. PANTOPRAZOLE SODIUM [Concomitant]
     Active Substance: PANTOPRAZOLE SODIUM
     Route: 065
     Dates: start: 20140921
  7. ASPIRIN. [Concomitant]
     Active Substance: ASPIRIN
     Dosage: 0.3 G PO (TOOK IN OUTPATIENT SERVICE)
     Route: 048
  8. ISOSORBIDE DINITRATE. [Concomitant]
     Active Substance: ISOSORBIDE DINITRATE
     Route: 060
     Dates: start: 20140923
  9. FUROSEMIDE. [Concomitant]
     Active Substance: FUROSEMIDE
     Route: 048
     Dates: start: 20140924
  10. SPIRONOLACTONE. [Concomitant]
     Active Substance: SPIRONOLACTONE
     Route: 048
     Dates: start: 20140924
  11. DOPAMINE [Concomitant]
     Active Substance: DOPAMINE\DOPAMINE HYDROCHLORIDE
     Route: 042
     Dates: start: 20140927
  12. DOPAMINE [Concomitant]
     Active Substance: DOPAMINE\DOPAMINE HYDROCHLORIDE
     Route: 042
     Dates: start: 20140927
  13. EPINEPHRINE. [Concomitant]
     Active Substance: EPINEPHRINE
     Route: 042
     Dates: start: 20140927
  14. EPINEPHRINE. [Concomitant]
     Active Substance: EPINEPHRINE
     Route: 042
     Dates: start: 20140927
  15. SODIUM CHLORIDE. [Concomitant]
     Active Substance: SODIUM CHLORIDE
     Dosage: 0.9 %, 10 ML
     Route: 042
     Dates: start: 20140921
  16. SODIUM CHLORIDE. [Concomitant]
     Active Substance: SODIUM CHLORIDE
     Dosage: 0.9% (SOFT) 250 ML
     Route: 041
     Dates: start: 20140927
  17. RUI TONG LI [Concomitant]
     Dosage: 18 MG IV BOLUS OVER 3 MIN
     Route: 042
     Dates: start: 20140921
  18. ASPIRIN. [Concomitant]
     Active Substance: ASPIRIN
     Route: 048
  19. BUCINPERAZINE [Concomitant]
     Dosage: 0.1 G IM.
     Dates: start: 20140921
  20. VITAMIN C [Concomitant]
     Active Substance: ASCORBIC ACID
     Dates: start: 20140923
  21. DIAZEPAM. [Concomitant]
     Active Substance: DIAZEPAM
     Route: 048
     Dates: start: 20140921
  22. NIKETHAMIDE [Concomitant]
     Active Substance: NIKETHAMIDE
     Route: 042
     Dates: start: 20140927
  23. BRILINTA [Suspect]
     Active Substance: TICAGRELOR
     Indication: ELECTROCARDIOGRAM ST SEGMENT ELEVATION
     Route: 048
     Dates: start: 20140921, end: 20140921
  24. SODIUM CHLORIDE. [Concomitant]
     Active Substance: SODIUM CHLORIDE
     Dosage: SOFT BAG
     Route: 041
     Dates: start: 20140923
  25. PANTOPRAZOLE SODIUM [Concomitant]
     Active Substance: PANTOPRAZOLE SODIUM
     Route: 065
     Dates: start: 20140921
  26. ALUMINUM PHOSPHATE [Concomitant]
     Active Substance: ALUMINUM PHOSPHATE
     Route: 048
     Dates: start: 20140921
  27. AMIODARONE [Concomitant]
     Active Substance: AMIODARONE
  28. COENZYME COMPLEX [Concomitant]
     Active Substance: UNSPECIFIED INGREDIENT
     Dosage: DAILY
     Dates: start: 20140921
  29. DOPAMINE [Concomitant]
     Active Substance: DOPAMINE\DOPAMINE HYDROCHLORIDE
     Route: 042
  30. DOPAMINE [Concomitant]
     Active Substance: DOPAMINE\DOPAMINE HYDROCHLORIDE
     Dosage: 200 MG (15 ML/H)
     Route: 042
     Dates: start: 20140927
  31. EPINEPHRINE. [Concomitant]
     Active Substance: EPINEPHRINE
     Route: 042
     Dates: start: 20140927
  32. BRILINTA [Suspect]
     Active Substance: TICAGRELOR
     Indication: ACUTE MYOCARDIAL INFARCTION
     Dosage: 150 MG PO  (TOOK IN OUTPATIENT SERVICE)
     Route: 048
     Dates: start: 20140921
  33. BRILINTA [Suspect]
     Active Substance: TICAGRELOR
     Indication: ELECTROCARDIOGRAM ST SEGMENT ELEVATION
     Dosage: 150 MG PO  (TOOK IN OUTPATIENT SERVICE)
     Route: 048
     Dates: start: 20140921
  34. SODIUM CHLORIDE. [Concomitant]
     Active Substance: SODIUM CHLORIDE
     Dosage: 0.9 %, 10 ML
     Route: 042
     Dates: start: 20140921
  35. SODIUM CHLORIDE. [Concomitant]
     Active Substance: SODIUM CHLORIDE
     Dosage: 0.9% (SOFT) 250 ML
     Route: 041
     Dates: start: 20140927
  36. NITROGLYCERIN. [Concomitant]
     Active Substance: NITROGLYCERIN
     Dosage: 0.2 MG
     Route: 065
     Dates: start: 20140921
  37. SODIUM HEPARIN [Concomitant]
     Active Substance: HEPARIN SODIUM
     Route: 065
     Dates: start: 20140921
  38. RETEPLASE [Concomitant]
     Active Substance: RETEPLASE
     Dosage: 18MG (3MIN)
     Route: 065
     Dates: start: 20140921
  39. METOCLOPRAMIDE. [Concomitant]
     Active Substance: METOCLOPRAMIDE
     Route: 030
     Dates: start: 20140921
  40. AMIODARONE [Concomitant]
     Active Substance: AMIODARONE
  41. TORASEMIDE [Concomitant]
     Active Substance: TORSEMIDE
     Route: 040
     Dates: start: 20140923
  42. CLOPIDOGREL [Concomitant]
     Active Substance: CLOPIDOGREL BISULFATE
     Dosage: SANOFI
     Route: 048
     Dates: start: 20140921
  43. ATORVASTATIN CALCIUM. [Concomitant]
     Active Substance: ATORVASTATIN CALCIUM
     Route: 048
     Dates: start: 20140921
  44. DIAZEPAM. [Concomitant]
     Active Substance: DIAZEPAM
     Dosage: 5 MG QN
     Route: 048
     Dates: start: 20140921
  45. BENAZEPRIL [Concomitant]
     Active Substance: BENAZEPRIL\BENAZEPRIL HYDROCHLORIDE
     Route: 048
     Dates: start: 20140921
  46. DOPAMINE [Concomitant]
     Active Substance: DOPAMINE\DOPAMINE HYDROCHLORIDE
     Route: 042
     Dates: start: 20140927
  47. EPINEPHRINE. [Concomitant]
     Active Substance: EPINEPHRINE
     Route: 042
     Dates: start: 20140927
  48. SODIUM CHLORIDE. [Concomitant]
     Active Substance: SODIUM CHLORIDE
     Dosage: 0.9 %, 50 ML
     Route: 041
     Dates: start: 20140921
  49. NITROGLYCERIN. [Concomitant]
     Active Substance: NITROGLYCERIN
     Dosage: 0.1 MG
     Route: 065
     Dates: start: 20140921
  50. WATER FOR INJECTION [Concomitant]
     Active Substance: WATER
     Route: 042
     Dates: start: 20140921
  51. ISOSORBIDE DINITRATE. [Concomitant]
     Active Substance: ISOSORBIDE DINITRATE
  52. TANSHIONE IIA [Concomitant]
     Route: 041
     Dates: start: 20140921
  53. SODIUM CHLORIDE. [Concomitant]
     Active Substance: SODIUM CHLORIDE
     Dosage: 0.9 %, 10 ML
     Route: 042
     Dates: start: 20140921
  54. SODIUM CHLORIDE. [Concomitant]
     Active Substance: SODIUM CHLORIDE
     Dosage: 0.9 %, 10 ML
     Route: 042
     Dates: start: 20140921
  55. WATER FOR INJECTION [Concomitant]
     Active Substance: WATER
     Route: 042
     Dates: start: 20140921
  56. GLUCOSE SALINE [Concomitant]
     Dosage: 5 %, 500 ML IV DRIP
     Route: 042
     Dates: start: 20140921
  57. XYLITOL [Concomitant]
     Active Substance: XYLITOL
     Route: 041
     Dates: start: 20140921
  58. ESOMEPRAZOLE SODIUM. [Concomitant]
     Active Substance: ESOMEPRAZOLE SODIUM
     Route: 042
  59. OCTREOTIDE [Concomitant]
     Active Substance: OCTREOTIDE
     Dosage: 0.1MG 4.2 ML/H
     Dates: start: 20140921
  60. OCTREOTIDE [Concomitant]
     Active Substance: OCTREOTIDE
     Dosage: (GUANGDONG) 1.2 MG 2.1 ML/H
     Dates: start: 20140921
  61. NIKETHAMIDE [Concomitant]
     Active Substance: NIKETHAMIDE
     Route: 042
     Dates: start: 20140927
  62. LOBELINE [Concomitant]
     Active Substance: LOBELINE
     Dates: start: 20140927
  63. EPINEPHRINE. [Concomitant]
     Active Substance: EPINEPHRINE
     Route: 042
     Dates: start: 20140927
  64. EPINEPHRINE. [Concomitant]
     Active Substance: EPINEPHRINE
     Route: 042
     Dates: start: 20140927
  65. EPINEPHRINE. [Concomitant]
     Active Substance: EPINEPHRINE
     Route: 042
     Dates: start: 20140927
  66. ISOPRENALINE [Concomitant]
     Active Substance: ISOPROTERENOL HYDROCHLORIDE
     Dates: start: 20140927
  67. SODIUM CHLORIDE. [Concomitant]
     Active Substance: SODIUM CHLORIDE
     Dosage: 0.9 %, 10 ML
     Route: 042
     Dates: start: 20140921
  68. JIUXIN [Concomitant]
     Route: 048
  69. THROMBESE [Concomitant]
     Dates: start: 20140921
  70. AMIODARONE [Concomitant]
     Active Substance: AMIODARONE
     Dosage: 0.3 G PUMP (5ML/H)
  71. AMIODARONE [Concomitant]
     Active Substance: AMIODARONE
     Route: 048
     Dates: start: 20140924
  72. ISOSORBIDE DINITRATE. [Concomitant]
     Active Substance: ISOSORBIDE DINITRATE
     Route: 060
  73. OMEPRAZOLE. [Concomitant]
     Active Substance: OMEPRAZOLE
     Route: 048
     Dates: start: 20140921

REACTIONS (8)
  - Haematemesis [Unknown]
  - Feeling abnormal [Unknown]
  - Dyspnoea [Unknown]
  - Faeces discoloured [Unknown]
  - Circulatory collapse [Fatal]
  - Myocardial rupture [Fatal]
  - Atrial fibrillation [Unknown]
  - Respiratory failure [Fatal]

NARRATIVE: CASE EVENT DATE: 20140923
